FAERS Safety Report 23942284 (Version 1)
Quarter: 2024Q2

REPORT INFORMATION
  Report Type: Spontaneous
  Country: JP (occurrence: None)
  Receive Date: 20240605
  Receipt Date: 20240605
  Transmission Date: 20240715
  Serious: Yes (Hospitalization)
  Sender: FDA-Public Use
  Company Number: 2024A127349

PATIENT
  Age: 63 Year
  Sex: Female

DRUGS (6)
  1. LYNPARZA [Suspect]
     Active Substance: OLAPARIB
     Indication: BRCA1 gene mutation
     Dosage: DOSE UNKNOWN
     Route: 048
  2. LYNPARZA [Suspect]
     Active Substance: OLAPARIB
     Indication: Breast cancer
     Dosage: DOSE UNKNOWN
     Route: 048
  3. LYNPARZA [Suspect]
     Active Substance: OLAPARIB
     Indication: Ovarian cancer
     Dosage: DOSE UNKNOWN
     Route: 048
  4. LETROZOLE [Concomitant]
     Active Substance: LETROZOLE
     Indication: Breast cancer
     Dosage: DOSE UNKNOWN
  5. LETROZOLE [Concomitant]
     Active Substance: LETROZOLE
     Indication: Ovarian cancer
     Dosage: DOSE UNKNOWN
  6. LETROZOLE [Concomitant]
     Active Substance: LETROZOLE
     Indication: BRCA2 gene mutation
     Dosage: DOSE UNKNOWN

REACTIONS (1)
  - Pneumocystis jirovecii pneumonia [Recovering/Resolving]
